FAERS Safety Report 9284377 (Version 3)
Quarter: 2013Q3

REPORT INFORMATION
  Report Type: Spontaneous
  Country: CA (occurrence: CA)
  Receive Date: 20130510
  Receipt Date: 20130710
  Transmission Date: 20140515
  Serious: Yes (Other)
  Sender: FDA-Public Use
  Company Number: CHPA2012US003231

PATIENT
  Age: 47 Year
  Sex: Male

DRUGS (6)
  1. BUCKLEY^S MIXTURE [Suspect]
     Indication: BRONCHITIS CHRONIC
     Dosage: ACCORDING TO LABEL, PRN
     Route: 048
  2. BUCKLEY^S MIXTURE [Suspect]
     Indication: COUGH
  3. BUCKLEY^S MIXTURE [Suspect]
     Indication: NASOPHARYNGITIS
  4. VICKS VAPORUB [Concomitant]
     Indication: COUGH
     Dosage: RUBBED ON THROAT AS NEEDED
     Route: 061
  5. VICKS VAPORUB [Concomitant]
     Indication: NASOPHARYNGITIS
  6. ECHINACEA [Concomitant]
     Dosage: UNK, UNK

REACTIONS (7)
  - Bronchopneumonia [Recovering/Resolving]
  - Dysphonia [Unknown]
  - Cough [Unknown]
  - Disease recurrence [Unknown]
  - Therapeutic response unexpected [Unknown]
  - Off label use [Unknown]
  - Incorrect dose administered [Unknown]
